FAERS Safety Report 5024687-8 (Version None)
Quarter: 2006Q2

REPORT INFORMATION
  Report Type: 
  Country: None (occurrence: None)
  Receive Date: 20060613
  Receipt Date: 20051024
  Transmission Date: 20061013
  Serious: No
  Sender: FDA-Public Use
  Company Number: US-BRISTOL-MYERS SQUIBB COMPANY-13156385

PATIENT
  Sex: Female

DRUGS (2)
  1. CORGARD [Suspect]
  2. XANAX [Interacting]

REACTIONS (4)
  - ANXIETY [None]
  - DEPRESSION [None]
  - DRUG INTERACTION [None]
  - TREMOR [None]
